FAERS Safety Report 19240281 (Version 1)
Quarter: 2021Q2

REPORT INFORMATION
  Report Type: Spontaneous
  Country: IN (occurrence: IN)
  Receive Date: 20210511
  Receipt Date: 20210511
  Transmission Date: 20210717
  Serious: Yes (Death, Hospitalization, Other)
  Sender: FDA-Public Use
  Company Number: IN-AMGEN-INDSP2021068534

PATIENT
  Age: 34 Year
  Sex: Female

DRUGS (2)
  1. FILGRASTIM [Suspect]
     Active Substance: FILGRASTIM
     Indication: WHITE BLOOD CELL COUNT DECREASED
     Dosage: UNK
     Route: 065
  2. CEFOTAXIME [Concomitant]
     Active Substance: CEFOTAXIME SODIUM
     Dosage: UNK

REACTIONS (8)
  - White blood cell count decreased [Unknown]
  - Staphylococcal infection [Unknown]
  - Dyspnoea [Unknown]
  - Drug effective for unapproved indication [Unknown]
  - Pemphigus [Fatal]
  - Sepsis [Fatal]
  - Febrile neutropenia [Fatal]
  - Off label use [Unknown]
